FAERS Safety Report 7081961-1 (Version None)
Quarter: 2010Q4

REPORT INFORMATION
  Report Type: 
  Country: None (occurrence: None)
  Receive Date: 20101103
  Receipt Date: 20101026
  Transmission Date: 20110411
  Serious: Yes (Other)
  Sender: FDA-Public Use
  Company Number: JP-PFIZER INC-2010136189

PATIENT
  Age: 85 Year
  Sex: Male

DRUGS (2)
  1. CADUET [Suspect]
     Dosage: UNK
     Route: 048
  2. WARFARIN [Concomitant]

REACTIONS (1)
  - PROTHROMBIN TIME PROLONGED [None]
